FAERS Safety Report 10571769 (Version 4)
Quarter: 2015Q2

REPORT INFORMATION
  Report Type: Spontaneous
  Country: GB (occurrence: GB)
  Receive Date: 20141107
  Receipt Date: 20150501
  Transmission Date: 20150821
  Serious: Yes (Hospitalization, Other)
  Sender: FDA-Public Use
  Company Number: GB-GE HEALTHCARE MEDICAL DIAGNOSTICS-VISP-PR-1410S-0483

PATIENT
  Age: 78 Year
  Sex: Male
  Weight: 102 kg

DRUGS (7)
  1. AUGMENTIN [Suspect]
     Active Substance: AMOXICILLIN\CLAVULANATE POTASSIUM
     Dates: start: 20141020
  2. VISIPAQUE [Suspect]
     Active Substance: IODIXANOL
     Indication: PERIPHERAL ARTERY ANEURYSM
     Route: 013
     Dates: start: 20141020, end: 20141020
  3. PROPAFENONE. [Concomitant]
     Active Substance: PROPAFENONE
     Indication: ARRHYTHMIA
  4. VISIPAQUE [Suspect]
     Active Substance: IODIXANOL
     Indication: THERAPEUTIC PROCEDURE
  5. PROPAFENONE. [Concomitant]
     Active Substance: PROPAFENONE
     Indication: TACHYCARDIA
  6. PROPAFENONE. [Concomitant]
     Active Substance: PROPAFENONE
     Indication: ATRIAL FIBRILLATION
  7. FUROSEMIDE. [Concomitant]
     Active Substance: FUROSEMIDE

REACTIONS (8)
  - Stevens-Johnson syndrome [Recovered/Resolved]
  - Skin lesion [Recovered/Resolved]
  - Urine output decreased [Recovered/Resolved]
  - Burning sensation [Recovered/Resolved]
  - Skin exfoliation [Recovered/Resolved]
  - Chills [Recovered/Resolved]
  - Hypersensitivity [Recovered/Resolved]
  - Injection site pain [Recovered/Resolved]

NARRATIVE: CASE EVENT DATE: 201410
